FAERS Safety Report 9801667 (Version 1)
Quarter: 2014Q1

REPORT INFORMATION
  Report Type: Spontaneous
  Country: NL (occurrence: NL)
  Receive Date: 20140107
  Receipt Date: 20140107
  Transmission Date: 20141002
  Serious: Yes (Other)
  Sender: FDA-Public Use
  Company Number: PHHY2013NL154743

PATIENT
  Sex: Female

DRUGS (2)
  1. TETRACOSACTIDE [Suspect]
     Dosage: UNK UKN, UNK
  2. CLONAZEPAM [Concomitant]
     Dosage: UNK UKN, UNK

REACTIONS (1)
  - Dry mouth [Unknown]
